FAERS Safety Report 7481402-6 (Version None)
Quarter: 2011Q2

REPORT INFORMATION
  Report Type: 
  Country: None (occurrence: None)
  Receive Date: 20110516
  Receipt Date: 20110510
  Transmission Date: 20111010
  Serious: Yes (Death, Other)
  Sender: FDA-Public Use
  Company Number: US-ELI_LILLY_AND_COMPANY-US201105002906

PATIENT
  Age: 72 Year
  Sex: Male

DRUGS (2)
  1. INSULIN [Concomitant]
     Dosage: UNK, UNKNOWN
     Route: 065
  2. EFFIENT [Suspect]
     Dosage: 10 MG, QD
     Route: 065
     Dates: start: 20110401

REACTIONS (1)
  - CORONARY ARTERY OCCLUSION [None]
